FAERS Safety Report 4475246-7 (Version None)
Quarter: 2004Q4

REPORT INFORMATION
  Report Type: 
  Country: None (occurrence: None)
  Receive Date: 20041012
  Receipt Date: 20041004
  Transmission Date: 20050328
  Serious: Yes (Life-Threatening, Hospitalization)
  Sender: FDA-Public Use
  Company Number: 208765

PATIENT
  Age: 16 Year
  Sex: Male
  Weight: 47 kg

DRUGS (27)
  1. XOLAIR [Suspect]
     Indication: ASTHMA
     Dosage: 375 MG, Q2W, SUBCUTANEOUS
     Route: 058
     Dates: start: 20031101, end: 20040817
  2. PROTOPIC [Concomitant]
  3. ADVAIR DISKUS (FLUTICASONE PROPIONATE, SALMETEROL XINAFOATE) [Concomitant]
  4. VENTOLIN INHALER (ALBUTEROL, ALBUTEROL SULFATE) [Concomitant]
  5. ATARAX [Concomitant]
  6. EPIPEN (EPINEPHRINE) [Concomitant]
  7. ATROVENT SOLUTION (IPRATROPIUM BROMIDE) [Concomitant]
  8. FLOVENT [Concomitant]
  9. HYDROCORTISONE CREAM (HYDROCORTISONE) [Concomitant]
  10. OS-CAL (CALCIUM CARBONATE) [Concomitant]
  11. LIDEX-E (FLUOCINONIDE) [Concomitant]
  12. LUBRIDERM (LANOLIN, GLYCERIN, MINERAL OIL) [Concomitant]
  13. BACTROBAN [Concomitant]
  14. FLONASE [Concomitant]
  15. ASTELIN [Concomitant]
  16. CORTISPORIN OTIC (HYDROCORTISONE, NEOMYCIN SULFATE, POLYMYXIN B SULFAT [Concomitant]
  17. TRIAMCINOLONE CREAM (TRIAMCINOLONE ACETONIDE) [Concomitant]
  18. PHENOL ([PHENOL) [Concomitant]
  19. MENTHOL (MENTHOL) [Concomitant]
  20. DECADRON [Concomitant]
  21. AFRIN [Concomitant]
  22. ALBUTEROL NEBULIZER (ALBUTEROL, ALBUTEROL SULFATE) [Concomitant]
  23. NASONEX [Concomitant]
  24. SINGULAIR [Concomitant]
  25. RHINOCORT [Concomitant]
  26. MINOCYKLIN (MINOCYCLINE HYDROCHLORIDE) [Concomitant]
  27. MYLANTA (ALUMINIUM HYDROXIDE, MAGNESIUM HYDROXIDE, SIMETHICONE) [Concomitant]

REACTIONS (15)
  - ABDOMINAL PAIN [None]
  - ANTI-PLATELET ANTIBODY POSITIVE [None]
  - DIZZINESS [None]
  - ECZEMA [None]
  - EPISTAXIS [None]
  - HAEMATURIA [None]
  - HEADACHE [None]
  - IDIOPATHIC THROMBOCYTOPENIC PURPURA [None]
  - MASS [None]
  - MEGAKARYOCYTES INCREASED [None]
  - PLEURAL DISORDER [None]
  - SPLEEN DISORDER [None]
  - STOMACH DISCOMFORT [None]
  - THERAPY NON-RESPONDER [None]
  - WHITE BLOOD CELL COUNT INCREASED [None]
